FAERS Safety Report 14037205 (Version 1)
Quarter: 2017Q4

REPORT INFORMATION
  Report Type: Spontaneous
  Country: US (occurrence: None)
  Receive Date: 20171003
  Receipt Date: 20171003
  Transmission Date: 20180321
  Serious: Yes (Hospitalization)
  Sender: FDA-Public Use
  Company Number: None

PATIENT
  Age: 12 Year
  Sex: Male

DRUGS (30)
  1. FLONASE [Concomitant]
     Active Substance: FLUTICASONE PROPIONATE
  2. ORKAMBI [Concomitant]
     Active Substance: IVACAFTOR\LUMACAFTOR
  3. ZYRTEC [Concomitant]
     Active Substance: CETIRIZINE HYDROCHLORIDE
  4. VITAMIN D [Concomitant]
     Active Substance: CHOLECALCIFEROL
  5. MIRALAX [Concomitant]
     Active Substance: POLYETHYLENE GLYCOL 3350
  6. BACTRIM [Concomitant]
     Active Substance: SULFAMETHOXAZOLE\TRIMETHOPRIM
  7. SODIUM CHLOR [Concomitant]
  8. PULMOZYME [Suspect]
     Active Substance: DORNASE ALFA
     Indication: CYSTIC FIBROSIS
     Route: 055
     Dates: start: 20160513
  9. MOTRIN IB [Concomitant]
     Active Substance: IBUPROFEN
  10. SMZ/TMP [Concomitant]
     Active Substance: SULFAMETHOXAZOLE\TRIMETHOPRIM
  11. ADVAIR HFA [Concomitant]
     Active Substance: FLUTICASONE PROPIONATE\SALMETEROL XINAFOATE
  12. HYPER-SAL 7% 4ML [Concomitant]
     Active Substance: SODIUM CHLORIDE
  13. CREON [Concomitant]
     Active Substance: PANCRELIPASE AMYLASE\PANCRELIPASE LIPASE\PANCRELIPASE PROTEASE
  14. HYPERSAL [Concomitant]
  15. OMEPRAZOLE. [Concomitant]
     Active Substance: OMEPRAZOLE
  16. TOBRAMYCIN 300MG/5ML [Suspect]
     Active Substance: TOBRAMYCIN
     Indication: CYSTIC FIBROSIS
     Route: 055
     Dates: start: 20160603
  17. CIPROFLOXACN [Concomitant]
     Active Substance: CIPROFLOXACIN
  18. BENEFIBER [Concomitant]
     Active Substance: STARCH, WHEAT
  19. TYLENOL [Concomitant]
     Active Substance: ACETAMINOPHEN
  20. PROBIOTIC [Concomitant]
     Active Substance: PROBIOTICS NOS
  21. FLUTICASONE. [Concomitant]
     Active Substance: FLUTICASONE
  22. TOBI [Concomitant]
     Active Substance: TOBRAMYCIN
  23. SINGULAIR [Concomitant]
     Active Substance: MONTELUKAST SODIUM
  24. ERYPED [Concomitant]
     Active Substance: ERYTHROMYCIN ETHYLSUCCINATE
  25. CETIRIZINE [Concomitant]
     Active Substance: CETIRIZINE HYDROCHLORIDE
  26. POLYETH GLYC [Concomitant]
     Active Substance: POLYETHYLENE GLYCOLS
  27. MILK OF MAGN [Concomitant]
  28. ADVAIR DISKU [Concomitant]
  29. ALBUTEROL. [Concomitant]
     Active Substance: ALBUTEROL
  30. MONTELUKAST [Concomitant]
     Active Substance: MONTELUKAST SODIUM

REACTIONS (1)
  - Pulmonary function test decreased [None]
